FAERS Safety Report 8790246 (Version 1)
Quarter: 2012Q4

REPORT INFORMATION
  Report Type: 
  Country: US (occurrence: US)
  Receive Date: 20120917
  Receipt Date: 20120917
  Transmission Date: 20130627
  Serious: Yes (Other)
  Sender: FDA-Public Use
  Company Number: US-JNJFOC-20120904015

PATIENT
  Age: 40 Year
  Sex: Female

DRUGS (1)
  1. CHILDREN^S BENADRYL [Suspect]
     Indication: HYPERSENSITIVITY
     Route: 065
     Dates: start: 20120906

REACTIONS (2)
  - Loss of consciousness [Unknown]
  - Incorrect dose administered [Unknown]
